FAERS Safety Report 19510647 (Version 1)
Quarter: 2021Q3

REPORT INFORMATION
  Report Type: Spontaneous
  Country: DE (occurrence: DE)
  Receive Date: 20210709
  Receipt Date: 20210709
  Transmission Date: 20211014
  Serious: Yes (Hospitalization, Other)
  Sender: FDA-Public Use
  Company Number: DE-TEVA-2021-DE-1929873

PATIENT
  Age: 80 Year
  Sex: Male
  Weight: 90 kg

DRUGS (11)
  1. ACETYLSALICYLICSAURE [Concomitant]
     Dosage: 100 MILLIGRAM DAILY; 1?0?0?0
     Route: 048
  2. VALPROINSAURE [Concomitant]
     Dosage: 600 MILLIGRAM DAILY; 1?0?1?0, SUSTAINED?RELEASE TABLETS
     Route: 048
  3. METAMIZOL [Concomitant]
     Active Substance: METAMIZOLE SODIUM
     Dosage: 500 MG, 2?1?2?0
     Route: 048
  4. VALPROINSAURE [Concomitant]
     Dosage: 1000 MILLIGRAM DAILY; 1?0?1?0, SUSTAINED?RELEASE TABLETS
     Route: 048
  5. HYDROCHLOROTHIAZID [Suspect]
     Active Substance: HYDROCHLOROTHIAZIDE
     Dosage: 12.5 MILLIGRAM DAILY; 1?0?0?0
     Route: 048
  6. TORASEMIDE [Suspect]
     Active Substance: TORSEMIDE
     Dosage: 10 MILLIGRAM DAILY; 1?0?0?0
     Route: 048
  7. OMEPRAZOL [Concomitant]
     Active Substance: OMEPRAZOLE
     Dosage: 40 MILLIGRAM DAILY; 0?0?0?1, SUSTAINED?RELEASE CAPSULES
     Route: 048
  8. LISINOPRIL. [Suspect]
     Active Substance: LISINOPRIL
     Dosage: 20 MILLIGRAM DAILY; 1?0?0?0
     Route: 048
  9. TAMSULOSIN [Concomitant]
     Active Substance: TAMSULOSIN
     Dosage: .4 MILLIGRAM DAILY; 0?0?0?1
     Route: 048
  10. CITALOPRAM [Concomitant]
     Active Substance: CITALOPRAM HYDROBROMIDE
     Dosage: 10 MILLIGRAM DAILY; 1?0?0?0
     Route: 048
  11. PYRIDOXIN (VITAMIN B6)/THIAMIN (VITAMIN B1) [Concomitant]
     Dosage: 1 DOSAGE FORMS DAILY; 100 | 100 MG, 1?0?0?0
     Route: 048

REACTIONS (6)
  - Pain in extremity [Unknown]
  - Cerebrovascular accident [Unknown]
  - Disturbance in attention [Unknown]
  - General physical health deterioration [Unknown]
  - Asthenia [Unknown]
  - Fall [Unknown]
